FAERS Safety Report 5226494-X (Version None)
Quarter: 2007Q1

REPORT INFORMATION
  Report Type: 
  Country: None (occurrence: None)
  Receive Date: 20061201
  Receipt Date: 20060920
  Transmission Date: 20070707
  Serious: No
  Sender: FDA-Public Use
  Company Number: US200609004990

PATIENT
  Age: 55 Year
  Sex: Female

DRUGS (1)
  1. CYMBALTA [Suspect]
     Dosage: 30 MG, DAILY (1/D), ORAL
     Route: 048

REACTIONS (4)
  - CHEST PAIN [None]
  - FUNGAL INFECTION [None]
  - NAUSEA [None]
  - URINARY TRACT INFECTION [None]
